FAERS Safety Report 7541329-8 (Version None)
Quarter: 2011Q2

REPORT INFORMATION
  Report Type: 
  Country: None (occurrence: None)
  Receive Date: 20110612
  Receipt Date: 20110531
  Transmission Date: 20111010
  Serious: Yes (Hospitalization, Other)
  Sender: FDA-Public Use
  Company Number: US-ELI_LILLY_AND_COMPANY-US201106000170

PATIENT
  Age: 89 Year
  Sex: Female

DRUGS (12)
  1. CITALOPRAM [Concomitant]
  2. FENOFIBRATE [Concomitant]
  3. PREDNISONE [Concomitant]
  4. CIPROFLOXACIN HCL [Concomitant]
  5. ALPRAZOLAM [Concomitant]
  6. RISPERDAL [Concomitant]
  7. NAMENDA [Concomitant]
  8. HYZAAR [Concomitant]
  9. SIMVASTATIN [Concomitant]
  10. ZYPREXA [Suspect]
     Dosage: 5 MG, QD
     Dates: start: 20110428, end: 20110505
  11. ARICEPT [Concomitant]
  12. SYNTHROID [Concomitant]

REACTIONS (4)
  - DEMENTIA [None]
  - URINARY TRACT INFECTION [None]
  - HALLUCINATION [None]
  - UNRESPONSIVE TO STIMULI [None]
